FAERS Safety Report 8554101 (Version 7)
Quarter: 2013Q1

REPORT INFORMATION
  Report Type: Spontaneous
  Country: US (occurrence: US)
  Receive Date: 20120509
  Receipt Date: 20130301
  Transmission Date: 20140127
  Serious: Yes (Hospitalization, Disabling, Other)
  Sender: FDA-Public Use
  Company Number: US-009507513-1205USA00013

PATIENT
  Sex: Female
  Weight: 89.89 kg

DRUGS (5)
  1. FOSAMAX [Suspect]
     Indication: OSTEOPOROSIS
     Dosage: 70 MG, UNK
     Route: 048
     Dates: start: 200105, end: 200312
  2. FOSAMAX [Suspect]
     Indication: OSTEOPENIA
     Dosage: 70 MG, QW
     Route: 048
     Dates: end: 200604
  3. FOSAMAX PLUS D [Suspect]
     Dosage: 70 MG/2800 IU, QW
     Dates: start: 200608, end: 201004
  4. ALENDRONATE SODIUM [Suspect]
     Indication: OSTEOPOROSIS
     Dosage: 70 MG, UNK
     Route: 048
     Dates: start: 201012, end: 201110
  5. ALENDRONATE SODIUM [Suspect]
     Indication: OSTEOPOROSIS PROPHYLAXIS

REACTIONS (44)
  - Femur fracture [Unknown]
  - Osteoporosis [Unknown]
  - Low turnover osteopathy [Unknown]
  - Stress fracture [Unknown]
  - Open reduction of fracture [Unknown]
  - Pulmonary embolism [Unknown]
  - Bronchitis [Unknown]
  - Chest pain [Unknown]
  - Atrial fibrillation [Unknown]
  - Fall [Unknown]
  - Calcium deficiency [Unknown]
  - Essential hypertension [Not Recovered/Not Resolved]
  - Hyperlipidaemia [Not Recovered/Not Resolved]
  - Asthma [Not Recovered/Not Resolved]
  - Peripheral vascular disorder [Unknown]
  - Breast mass [Not Recovered/Not Resolved]
  - Venous insufficiency [Not Recovered/Not Resolved]
  - Arthropod bite [Unknown]
  - Cellulitis [Recovering/Resolving]
  - Intermittent claudication [Unknown]
  - Skin papilloma [Unknown]
  - Upper respiratory tract infection [Unknown]
  - Osteoarthritis [Unknown]
  - Cellulitis [Unknown]
  - Impaired healing [Not Recovered/Not Resolved]
  - Vitamin D decreased [Unknown]
  - Chronic obstructive pulmonary disease [Not Recovered/Not Resolved]
  - Granuloma [Unknown]
  - Venous insufficiency [Unknown]
  - Hypokalaemia [Unknown]
  - Cough [Unknown]
  - Night sweats [Unknown]
  - Fatigue [Unknown]
  - Oropharyngeal pain [Unknown]
  - Pyrexia [Unknown]
  - Myalgia [Unknown]
  - Erythema [Recovered/Resolved]
  - Drug hypersensitivity [Unknown]
  - Cardiac murmur [Unknown]
  - Tooth loss [Unknown]
  - Osteoarthritis [Unknown]
  - Meniscus injury [Unknown]
  - Ligament sprain [Unknown]
  - Oedema peripheral [Unknown]
